FAERS Safety Report 10405216 (Version 2)
Quarter: 2015Q3

REPORT INFORMATION
  Report Type: Spontaneous
  Country: DK (occurrence: DK)
  Receive Date: 20140825
  Receipt Date: 20150819
  Transmission Date: 20151125
  Serious: Yes (Other)
  Sender: FDA-Public Use
  Company Number: PHHY2014DK104136

PATIENT
  Age: 49 Year
  Sex: Male
  Weight: 108 kg

DRUGS (4)
  1. PAZOPANIB HYDROCHLORIDE [Concomitant]
     Active Substance: PAZOPANIB HYDROCHLORIDE
     Indication: RENAL CANCER METASTATIC
     Route: 065
  2. ZOMETA [Suspect]
     Active Substance: ZOLEDRONIC ACID
     Indication: OFF LABEL USE
  3. PREDNISOLONE. [Concomitant]
     Active Substance: PREDNISOLONE
     Indication: RENAL CANCER METASTATIC
     Route: 065
     Dates: start: 20130410, end: 20131117
  4. ZOMETA [Suspect]
     Active Substance: ZOLEDRONIC ACID
     Indication: RENAL CANCER METASTATIC
     Dosage: 4 MG, QMO
     Route: 042
     Dates: start: 20130319, end: 20140102

REACTIONS (4)
  - Swelling [Unknown]
  - Bone lesion [Unknown]
  - Osteonecrosis of jaw [Not Recovered/Not Resolved]
  - Erythema [Unknown]

NARRATIVE: CASE EVENT DATE: 20140113
